FAERS Safety Report 4834637-2 (Version None)
Quarter: 2005Q4

REPORT INFORMATION
  Report Type: 
  Country: None (occurrence: None)
  Receive Date: 20051122
  Receipt Date: 20050531
  Transmission Date: 20060501
  Serious: No
  Sender: FDA-Public Use
  Company Number: US-BRISTOL-MYERS SQUIBB COMPANY-12987244

PATIENT
  Age: 67 Year
  Sex: Female
  Weight: 54 kg

DRUGS (8)
  1. PRAVACHOL [Suspect]
     Indication: BLOOD CHOLESTEROL INCREASED
     Dates: end: 20050519
  2. CARDIZEM CD [Concomitant]
  3. LOPRESSOR [Concomitant]
  4. SYNTHROID [Concomitant]
  5. EVISTA [Concomitant]
  6. ASPIRIN [Concomitant]
  7. MULTI-VITAMIN [Concomitant]
  8. CALCIUM GLUCONATE [Concomitant]

REACTIONS (1)
  - FAECES HARD [None]
